FAERS Safety Report 6336155-1 (Version None)
Quarter: 2009Q3

REPORT INFORMATION
  Report Type: 
  Country: None (occurrence: None)
  Receive Date: 20090828
  Receipt Date: 20090818
  Transmission Date: 20100115
  Serious: Yes (Hospitalization)
  Sender: FDA-Public Use
  Company Number: ADR13992009

PATIENT
  Age: 54 Year
  Sex: Female

DRUGS (1)
  1. CITALOPRAM HYDROBROMIDE [Suspect]
     Dosage: 20MG ORAL
     Route: 048

REACTIONS (6)
  - DIZZINESS [None]
  - DYSPHAGIA [None]
  - HYPERHIDROSIS [None]
  - PRESYNCOPE [None]
  - SYNCOPE [None]
  - TACHYCARDIA [None]
